FAERS Safety Report 5044982-6 (Version None)
Quarter: 2006Q2

REPORT INFORMATION
  Report Type: 
  Country: None (occurrence: None)
  Receive Date: 20060601
  Receipt Date: 20060316
  Transmission Date: 20061013
  Serious: No
  Sender: FDA-Public Use
  Company Number: US200603004900

PATIENT
  Age: 63 Year
  Sex: Female

DRUGS (11)
  1. CYMBALTA [Suspect]
     Indication: PAIN
     Dosage: 30 MG, DAILY (1/D)
     Dates: start: 20060201
  2. METFORMIN (METFORMIN) [Concomitant]
  3. NEXIUM [Concomitant]
  4. PROPOXYPHENE (DEXTROPROPOXYPHENE) [Concomitant]
  5. SYNTHROID [Concomitant]
  6. CYLERT [Concomitant]
  7. ZETIA [Concomitant]
  8. LISINOPRIL [Concomitant]
  9. TEMAZEPAM [Concomitant]
  10. KLONOPIN [Concomitant]
  11. SINGULAIR [Concomitant]

REACTIONS (3)
  - AMNESIA [None]
  - CONFUSIONAL STATE [None]
  - FATIGUE [None]
